FAERS Safety Report 4341407-0 (Version None)
Quarter: 2004Q2

REPORT INFORMATION
  Report Type: 
  Country: None (occurrence: None)
  Receive Date: 20040415
  Receipt Date: 20040409
  Transmission Date: 20050107
  Serious: No
  Sender: FDA-Public Use
  Company Number: 04P-028-0254702-0

PATIENT
  Age: 7 Year
  Sex: Male

DRUGS (1)
  1. EPIVAL SYRUP (DEPAKENE SYRUP) (VALPROIC ACID) (VALPROIC ACID) [Suspect]
     Dosage: 125 MG AT BEDTIME, PER ORAL
     Route: 048

REACTIONS (2)
  - CONVULSION [None]
  - PHARMACEUTICAL PRODUCT COMPLAINT [None]
